FAERS Safety Report 8953297 (Version 3)
Quarter: 2013Q1

REPORT INFORMATION
  Report Type: Spontaneous
  Country: US (occurrence: US)
  Receive Date: 20121206
  Receipt Date: 20130125
  Transmission Date: 20140127
  Serious: No
  Sender: FDA-Public Use
  Company Number: US-009507513-1212USA000952

PATIENT
  Sex: 0

DRUGS (1)
  1. INTRONA [Suspect]

REACTIONS (3)
  - Influenza like illness [Unknown]
  - Myalgia [Unknown]
  - Headache [Unknown]
